FAERS Safety Report 5054862-8 (Version None)
Quarter: 2006Q3

REPORT INFORMATION
  Report Type: 
  Country: None (occurrence: None)
  Receive Date: 20060719
  Receipt Date: 20060224
  Transmission Date: 20061208
  Serious: Yes (Hospitalization, Disabling)
  Sender: FDA-Public Use
  Company Number: UG-GILEAD-2006-0009263

PATIENT
  Sex: Female

DRUGS (4)
  1. TENOFOVIR DISOPROXIL FUMARATE [Suspect]
     Indication: HIV INFECTION
     Dates: start: 20030820, end: 20051108
  2. LAMIVUDINE [Suspect]
     Indication: HIV INFECTION
  3. EFAVIRENZ [Suspect]
     Indication: HIV INFECTION
     Dates: start: 20040217
  4. COTRIMOXAZOLE [Suspect]
     Dates: start: 20030820

REACTIONS (6)
  - ANAEMIA [None]
  - CHEST PAIN [None]
  - COUGH [None]
  - GAIT DISTURBANCE [None]
  - OSTEOPENIA [None]
  - SPINAL COMPRESSION FRACTURE [None]
